FAERS Safety Report 8818368 (Version 3)
Quarter: 2013Q2

REPORT INFORMATION
  Report Type: Spontaneous
  Country: AR (occurrence: AR)
  Receive Date: 20121001
  Receipt Date: 20130524
  Transmission Date: 20140414
  Serious: Yes (Hospitalization, Other)
  Sender: FDA-Public Use
  Company Number: AR-ROCHE-1138837

PATIENT
  Age: 41 Year
  Sex: Female

DRUGS (2)
  1. XOLAIR [Suspect]
     Indication: ASTHMA
     Route: 065
     Dates: start: 201206
  2. XOLAIR [Suspect]
     Route: 065
     Dates: start: 201304

REACTIONS (4)
  - Urinary tract infection [Recovered/Resolved]
  - Throat lesion [Recovered/Resolved]
  - Infection [Unknown]
  - Dyspnoea [Unknown]
